FAERS Safety Report 24881849 (Version 2)
Quarter: 2025Q1

REPORT INFORMATION
  Report Type: Spontaneous
  Country: US (occurrence: US)
  Receive Date: 20250124
  Receipt Date: 20250306
  Transmission Date: 20250409
  Serious: Yes (Other)
  Sender: SANOFI AVENTIS
  Company Number: US-SA-2025SA022257

PATIENT
  Age: 82 Year
  Sex: Male
  Weight: 81.6 kg

DRUGS (23)
  1. DUPIXENT [Suspect]
     Active Substance: DUPILUMAB
     Indication: Dermatitis atopic
     Dosage: 300 MG, QOW
     Route: 058
     Dates: start: 20250101
  2. OXYBUTYNIN CHLORIDE [Concomitant]
     Active Substance: OXYBUTYNIN CHLORIDE
  3. ROSUVASTATIN CALCIUM [Concomitant]
     Active Substance: ROSUVASTATIN CALCIUM
  4. MIRABEGRON [Concomitant]
     Active Substance: MIRABEGRON
  5. ACYCLOVIR [Concomitant]
     Active Substance: ACYCLOVIR
  6. LECITHIN [Concomitant]
     Active Substance: LECITHIN
  7. HERBALS\SAW PALMETTO [Concomitant]
     Active Substance: HERBALS\SAW PALMETTO
  8. AMINO ACIDS [Concomitant]
     Active Substance: AMINO ACIDS
  9. LIOTHYRONINE SODIUM [Concomitant]
     Active Substance: LIOTHYRONINE SODIUM
  10. ZINC [Concomitant]
     Active Substance: ZINC
  11. CELEBREX [Concomitant]
     Active Substance: CELECOXIB
  12. MELATONIN [Concomitant]
     Active Substance: MELATONIN
  13. Glucosamin chondroitin [Concomitant]
  14. PENTASA [Concomitant]
     Active Substance: MESALAMINE
  15. VITAMIN D3 [Concomitant]
     Active Substance: CHOLECALCIFEROL
  16. SYNTHROID [Concomitant]
     Active Substance: LEVOTHYROXINE SODIUM
  17. COENZYME Q10 [Concomitant]
     Active Substance: DIETARY SUPPLEMENT\UBIDECARENONE
  18. MINERALS\VITAMINS [Concomitant]
     Active Substance: MINERALS\VITAMINS
  19. FISH OIL [Concomitant]
     Active Substance: FISH OIL
  20. VITAMIN E [Concomitant]
     Active Substance: .ALPHA.-TOCOPHEROL
  21. SELENIUM [Concomitant]
     Active Substance: SELENIUM
  22. PRASTERONE [Concomitant]
     Active Substance: PRASTERONE
  23. ANDROGEL [Concomitant]
     Active Substance: TESTOSTERONE

REACTIONS (2)
  - Rectal haemorrhage [Unknown]
  - Surgery [Recovering/Resolving]

NARRATIVE: CASE EVENT DATE: 20250101
